FAERS Safety Report 8155700-7 (Version None)
Quarter: 2012Q1

REPORT INFORMATION
  Report Type: 
  Country: None (occurrence: None)
  Receive Date: 20120222
  Receipt Date: 20120213
  Transmission Date: 20120608
  Serious: Yes (Hospitalization, Other)
  Sender: FDA-Public Use
  Company Number: US-JNJFOC-20110312175

PATIENT
  Sex: Female
  Weight: 58.97 kg

DRUGS (17)
  1. FENTANYL-100 [Suspect]
     Route: 062
  2. FENTANYL-100 [Suspect]
     Indication: PRODUCT USED FOR UNKNOWN INDICATION
     Route: 062
     Dates: start: 20110328
  3. DURAGESIC-100 [Suspect]
     Route: 062
  4. DURAGESIC-100 [Suspect]
     Route: 062
     Dates: end: 20110328
  5. FENTANYL-100 [Suspect]
     Indication: BACK PAIN
     Route: 062
  6. NEXIUM [Concomitant]
     Indication: GASTRIC DISORDER
     Route: 048
  7. DURAGESIC-100 [Suspect]
     Route: 062
  8. DURAGESIC-100 [Suspect]
     Route: 062
  9. FENTANYL [Suspect]
     Indication: PRODUCT USED FOR UNKNOWN INDICATION
  10. DURAGESIC-100 [Suspect]
     Route: 062
  11. DURAGESIC-100 [Suspect]
     Route: 062
  12. FENTANYL-100 [Suspect]
     Indication: PAIN IN EXTREMITY
     Route: 062
  13. DURAGESIC-100 [Suspect]
     Indication: PAIN IN EXTREMITY
     Route: 062
     Dates: end: 20110328
  14. DURAGESIC-100 [Suspect]
     Route: 062
  15. NORVASC [Concomitant]
     Indication: HYPERTENSION
     Route: 048
     Dates: start: 20110101
  16. DURAGESIC-100 [Suspect]
     Indication: BACK PAIN
     Route: 062
     Dates: end: 20110328
  17. METOPROLOL TARTRATE [Concomitant]
     Indication: HYPERTENSION
     Route: 048
     Dates: start: 20110101

REACTIONS (8)
  - RASH ERYTHEMATOUS [None]
  - DERMATITIS CONTACT [None]
  - SWELLING [None]
  - HYPERTENSION [None]
  - PRODUCT QUALITY ISSUE [None]
  - MOBILITY DECREASED [None]
  - PARAESTHESIA [None]
  - PAIN IN EXTREMITY [None]
